FAERS Safety Report 15010679 (Version 1)
Quarter: 2018Q2

REPORT INFORMATION
  Report Type: Spontaneous
  Country: US (occurrence: US)
  Receive Date: 20180522
  Receipt Date: 20180522
  Transmission Date: 20180711
  Serious: Yes (Hospitalization)
  Sender: FDA-Public Use
  Company Number: None

PATIENT
  Age: 56 Year
  Sex: Male
  Weight: 37.3 kg

DRUGS (22)
  1. BETADERM [Concomitant]
     Active Substance: BETAMETHASONE VALERATE
  2. COCUSATE [Concomitant]
  3. LORAZEPAM. [Concomitant]
     Active Substance: LORAZEPAM
  4. DEXTRAN [Concomitant]
     Active Substance: DEXTRAN
  5. RIFAMPIN. [Concomitant]
     Active Substance: RIFAMPIN
  6. MULTIVITAMIN [Concomitant]
     Active Substance: VITAMINS
  7. LACRILUDE [Concomitant]
  8. VITAMIN D [Concomitant]
     Active Substance: CHOLECALCIFEROL
  9. CEPHALEXIN. [Concomitant]
     Active Substance: CEPHALEXIN
  10. ELAVIL [Concomitant]
     Active Substance: AMITRIPTYLINE HYDROCHLORIDE
  11. ZOPLICONE [Concomitant]
     Active Substance: ZOPICLONE
  12. RABEPRAZOLE [Concomitant]
     Active Substance: RABEPRAZOLE
  13. TEMAZEPAM. [Concomitant]
     Active Substance: TEMAZEPAM
  14. METFORMIN [Concomitant]
     Active Substance: METFORMIN HYDROCHLORIDE
  15. RISEDRONATE [Concomitant]
     Active Substance: RISEDRONATE SODIUM
  16. HUMIRA [Concomitant]
     Active Substance: ADALIMUMAB
  17. EPCLUSA [Suspect]
     Active Substance: SOFOSBUVIR\VELPATASVIR
     Indication: HEPATITIS C
     Dosage: 400MG/100MG QD ORAL
     Route: 048
     Dates: start: 20171217, end: 20180311
  18. PERCOCET [Concomitant]
     Active Substance: ACETAMINOPHEN\OXYCODONE HYDROCHLORIDE
  19. DOVOBET [Concomitant]
     Active Substance: BETAMETHASONE\CALCIPOTRIENE
  20. ESCITALOPRAM [Concomitant]
     Active Substance: ESCITALOPRAM OXALATE
  21. DEXAMETHASONE. [Concomitant]
     Active Substance: DEXAMETHASONE
  22. DOXEPIN [Concomitant]
     Active Substance: DOXEPIN

REACTIONS (1)
  - Disseminated tuberculosis [None]

NARRATIVE: CASE EVENT DATE: 20180221
